FAERS Safety Report 14405276 (Version 2)
Quarter: 2018Q1

REPORT INFORMATION
  Report Type: Spontaneous
  Country: FR (occurrence: FR)
  Receive Date: 20180118
  Receipt Date: 20180130
  Transmission Date: 20180509
  Serious: Yes (Other)
  Sender: FDA-Public Use
  Company Number: FR-MERCK KGAA-2040264

PATIENT
  Age: 11 Year
  Sex: Female
  Weight: 40 kg

DRUGS (1)
  1. NOVOTHYROX [Suspect]
     Active Substance: LEVOTHYROXINE SODIUM
     Indication: CONGENITAL HYPOTHYROIDISM
     Route: 048
     Dates: start: 20170502

REACTIONS (10)
  - Depressive symptom [Recovered/Resolved]
  - Hot flush [Recovered/Resolved]
  - Vertigo [Recovered/Resolved]
  - Myalgia [Recovering/Resolving]
  - Fatigue [Recovered/Resolved]
  - Abdominal pain [Recovered/Resolved]
  - Headache [Recovered/Resolved]
  - Mood swings [Recovered/Resolved]
  - Diffuse alopecia [Recovered/Resolved]
  - Blood thyroid stimulating hormone [Recovered/Resolved]

NARRATIVE: CASE EVENT DATE: 20170515
